FAERS Safety Report 25916325 (Version 2)
Quarter: 2025Q4

REPORT INFORMATION
  Report Type: Report from Study
  Country: US (occurrence: US)
  Receive Date: 20251014
  Receipt Date: 20251027
  Transmission Date: 20260119
  Serious: Yes (Other)
  Sender: ABBVIE
  Company Number: US-ABBVIE-6494241

PATIENT
  Age: 73 Year
  Sex: Female
  Weight: 78.471 kg

DRUGS (2)
  1. HUMIRA [Suspect]
     Active Substance: ADALIMUMAB
     Indication: Rheumatoid arthritis
     Dosage: FORM STRENGTH-40MG,?DOSE FORM- SOLUTION FOR INJECTION IN PRE-FILLED PEN
     Route: 058
     Dates: start: 202509, end: 20250921
  2. HUMIRA [Suspect]
     Active Substance: ADALIMUMAB
     Dosage: DOSE FORM- SOLUTION FOR INJECTION,?FORM STRENGTH: 40 MILLIGRAM
     Route: 058

REACTIONS (18)
  - Cyst [Unknown]
  - Feeling abnormal [Unknown]
  - Rheumatoid arthritis [Unknown]
  - Injection site pain [Unknown]
  - Incorrect dose administered [Unknown]
  - Arthralgia [Unknown]
  - Arthritis [Unknown]
  - Injection site swelling [Unknown]
  - Surgery [Recovering/Resolving]
  - Loss of personal independence in daily activities [Unknown]
  - Pain in extremity [Unknown]
  - Therapy cessation [Unknown]
  - Colour blindness [Unknown]
  - Injection site discharge [Not Recovered/Not Resolved]
  - Injection site erythema [Unknown]
  - Device issue [Unknown]
  - Hypoacusis [Unknown]
  - Weight decreased [Unknown]

NARRATIVE: CASE EVENT DATE: 20250301
